FAERS Safety Report 4271506-3 (Version None)
Quarter: 2004Q1

REPORT INFORMATION
  Report Type: 
  Country: None (occurrence: None)
  Receive Date: 20040113
  Receipt Date: 20031222
  Transmission Date: 20041129
  Serious: Yes (Hospitalization)
  Sender: FDA-Public Use
  Company Number: JP_031202425

PATIENT
  Sex: Male

DRUGS (3)
  1. ONCOVIN [Suspect]
     Indication: NON-HODGKIN'S LYMPHOMA
     Dosage: 1.5 MG/M2/OTHER
  2. PREDNISOLONE SODIUM SUCCINATE INJ [Concomitant]
  3. ELSPAR [Concomitant]

REACTIONS (3)
  - CONSTIPATION [None]
  - INAPPROPRIATE ANTIDIURETIC HORMONE SECRETION [None]
  - LEUKOENCEPHALOPATHY [None]
